FAERS Safety Report 4323749-8 (Version None)
Quarter: 2004Q1

REPORT INFORMATION
  Report Type: 
  Country: None (occurrence: None)
  Receive Date: 20040323
  Receipt Date: 20040308
  Transmission Date: 20041129
  Serious: Yes (Hospitalization)
  Sender: FDA-Public Use
  Company Number: GB-JNJFOC-20040301733

PATIENT
  Age: 66 Year
  Sex: Male

DRUGS (1)
  1. RISPERDAL [Suspect]
     Indication: DEMENTIA

REACTIONS (1)
  - CEREBROVASCULAR ACCIDENT [None]
